FAERS Safety Report 18082172 (Version 1)
Quarter: 2020Q3

REPORT INFORMATION
  Report Type: Spontaneous
  Country: US (occurrence: US)
  Receive Date: 20200728
  Receipt Date: 20200728
  Transmission Date: 20201103
  Serious: No
  Sender: FDA-Public Use
  Company Number: US-PERRIGO-19US013214

PATIENT
  Age: 28 Year
  Sex: Male
  Weight: 83.9 kg

DRUGS (2)
  1. FINASTERIDE. [Concomitant]
     Active Substance: FINASTERIDE
     Indication: PRODUCT USED FOR UNKNOWN INDICATION
     Dosage: UNK
     Route: 065
  2. MINOXIDIL. [Suspect]
     Active Substance: MINOXIDIL
     Indication: ALOPECIA
     Dosage: 1 ML, BID
     Route: 061
     Dates: start: 20190901, end: 20190920

REACTIONS (6)
  - Application site scab [Recovered/Resolved]
  - Application site pruritus [Recovered/Resolved]
  - Dermatitis contact [Recovered/Resolved]
  - Application site irritation [Recovering/Resolving]
  - Erythema [Recovered/Resolved]
  - Seborrhoeic dermatitis [Recovered/Resolved]

NARRATIVE: CASE EVENT DATE: 20190920
